FAERS Safety Report 9004032 (Version 1)
Quarter: 2013Q1

REPORT INFORMATION
  Report Type: Spontaneous
  Country: US (occurrence: US)
  Receive Date: 20130108
  Receipt Date: 20130108
  Transmission Date: 20140127
  Serious: Yes (Other)
  Sender: FDA-Public Use
  Company Number: US-009507513-1301USA001550

PATIENT
  Sex: Female

DRUGS (3)
  1. MONTELUKAST SODIUM [Suspect]
  2. ALBUTEROL SULFATE [Suspect]
  3. ADVAIR [Suspect]

REACTIONS (1)
  - Asthma [Unknown]
